FAERS Safety Report 4795576-9 (Version None)
Quarter: 2005Q4

REPORT INFORMATION
  Report Type: 
  Country: None (occurrence: None)
  Receive Date: 20051007
  Receipt Date: 20051007
  Transmission Date: 20060501
  Serious: Yes (Life-Threatening)
  Sender: FDA-Public Use
  Company Number: None

PATIENT
  Age: 58 Year
  Sex: Male
  Weight: 68 kg

DRUGS (7)
  1. CISPLATIN [Suspect]
     Indication: OESOPHAGEAL CANCER METASTATIC
     Dosage: 30 MG/M2  -57 MG-   DAY 1+8 Q 21DAY
     Dates: start: 20040209, end: 20050124
  2. OXYCODONE HCL [Concomitant]
  3. LORAZEPAM [Concomitant]
  4. PROCHLORPERAZINE [Concomitant]
  5. DEXAMETHASONE [Concomitant]
  6. APREPITANT [Concomitant]
  7. ONDANSETRON [Concomitant]

REACTIONS (2)
  - DRUG HYPERSENSITIVITY [None]
  - OXYGEN SATURATION DECREASED [None]
